FAERS Safety Report 9026782 (Version 2)
Quarter: 2013Q1

REPORT INFORMATION
  Report Type: Spontaneous
  Country: CH (occurrence: CH)
  Receive Date: 20130123
  Receipt Date: 20130131
  Transmission Date: 20140127
  Serious: Yes (Death)
  Sender: FDA-Public Use
  Company Number: CH-ASTELLAS-2013US000786

PATIENT
  Sex: Female

DRUGS (2)
  1. AMBISOME [Suspect]
     Indication: ASPERGILLUS INFECTION
     Dosage: UNK
     Route: 065
     Dates: start: 20120729
  2. VORICONAZOLE [Concomitant]
     Indication: PRODUCT USED FOR UNKNOWN INDICATION
     Dosage: UNK
     Route: 065
     Dates: start: 20120604, end: 20120729

REACTIONS (2)
  - Procedural haemorrhage [Fatal]
  - Haemoptysis [Fatal]
